FAERS Safety Report 5360278-7 (Version None)
Quarter: 2007Q2

REPORT INFORMATION
  Report Type: 
  Country: None (occurrence: None)
  Receive Date: 20070614
  Receipt Date: 20070530
  Transmission Date: 20071010
  Serious: Yes (Hospitalization)
  Sender: FDA-Public Use
  Company Number: 2007000992

PATIENT
  Age: 63 Year
  Sex: Female
  Weight: 77.5651 kg

DRUGS (12)
  1. ERLOTINIB (TABLET) [Suspect]
     Indication: PANCREATIC CARCINOMA
     Dosage: 150 MG (QD), ORAL
     Route: 048
     Dates: start: 20070510
  2. GEMCITABINE [Suspect]
     Indication: PANCREATIC CARCINOMA
     Dosage: 2500 (Q2W), INTRAVENOUS
     Route: 042
     Dates: start: 20070510
  3. REMERON [Concomitant]
  4. SYNTHROID [Concomitant]
  5. ZOCOR [Concomitant]
  6. ACIPHEX [Concomitant]
  7. ZOLOFT [Concomitant]
  8. DETROL LA [Concomitant]
  9. LOTREL [Concomitant]
  10. ACTOS (PIOGLITAZOLE HYDROCHLORIDE) [Concomitant]
  11. ZOVIRAX [Concomitant]
  12. HUMALOG [Concomitant]

REACTIONS (12)
  - ATELECTASIS [None]
  - BODY TEMPERATURE INCREASED [None]
  - FIBRIN D DIMER INCREASED [None]
  - GLOMERULAR FILTRATION RATE DECREASED [None]
  - HAEMATOMA [None]
  - HAEMATOMA INFECTION [None]
  - HAEMOGLOBIN DECREASED [None]
  - INFUSION SITE PAIN [None]
  - INTERNATIONAL NORMALISED RATIO INCREASED [None]
  - LUNG NEOPLASM [None]
  - OEDEMA PERIPHERAL [None]
  - PAIN IN EXTREMITY [None]
